FAERS Safety Report 7119676-3 (Version None)
Quarter: 2010Q4

REPORT INFORMATION
  Report Type: 
  Country: None (occurrence: None)
  Receive Date: 20101123
  Receipt Date: 20101117
  Transmission Date: 20110411
  Serious: Yes (Hospitalization, Other)
  Sender: FDA-Public Use
  Company Number: FR-GENZYME-CERZ-1001655

PATIENT

DRUGS (2)
  1. CEREZYME [Suspect]
     Indication: GAUCHER'S DISEASE
     Dosage: 60 U/KG, Q2W
     Route: 042
  2. MIGLUSTAT [Suspect]
     Indication: GAUCHER'S DISEASE
     Dosage: 300 MG, QD
     Route: 065

REACTIONS (3)
  - ASTHENIA [None]
  - BONE INFARCTION [None]
  - TREMOR [None]
